FAERS Safety Report 7274322-3 (Version None)
Quarter: 2011Q1

REPORT INFORMATION
  Report Type: 
  Country: None (occurrence: None)
  Receive Date: 20110131
  Receipt Date: 20110131
  Transmission Date: 20110831
  Serious: Yes (Death)
  Sender: FDA-Public Use
  Company Number: None

PATIENT
  Sex: Male
  Weight: 70.3075 kg

DRUGS (1)
  1. BEVACIZUMAB 25MG/ML GENENTECH [Suspect]
     Indication: NON-SMALL CELL LUNG CANCER
     Dosage: 1130MG Q3WEEKS IV
     Route: 042
     Dates: start: 20101207, end: 20110118

REACTIONS (3)
  - EXSANGUINATION [None]
  - CONSTIPATION [None]
  - HAEMOPTYSIS [None]
